FAERS Safety Report 6388021-3 (Version None)
Quarter: 2009Q3

REPORT INFORMATION
  Report Type: 
  Country: None (occurrence: None)
  Receive Date: 20090930
  Receipt Date: 20090909
  Transmission Date: 20100115
  Serious: Yes (Hospitalization)
  Sender: FDA-Public Use
  Company Number: IDA-00267

PATIENT
  Age: 57 Year
  Sex: Female

DRUGS (2)
  1. PROPRANOLOL [Suspect]
     Dosage: 40 MG BID/160 MG DAILY, ORAL, CAPSULE CONTR REL
     Route: 048
     Dates: start: 20080918, end: 20080922
  2. AMLODIPINE BESYLATE [Concomitant]

REACTIONS (3)
  - ATRIOVENTRICULAR BLOCK SECOND DEGREE [None]
  - DIALYSIS [None]
  - MALAISE [None]
